FAERS Safety Report 10089154 (Version 1)
Quarter: 2014Q2

REPORT INFORMATION
  Report Type: Spontaneous
  Country: US (occurrence: None)
  Receive Date: 20140418
  Receipt Date: 20140418
  Transmission Date: 20141212
  Serious: Yes (Life-Threatening)
  Sender: FDA-Public Use
  Company Number: None

PATIENT
  Age: 46 Day
  Sex: Female
  Weight: 79.38 kg

DRUGS (1)
  1. OLANZAPINE TABLETSUSP 10MG DR. REDDY^S LAB LIMITED, INDIA [Suspect]
     Indication: MENTAL DISORDER
     Dosage: 1 PILL ONCE DAILY TAKEN BY MOUTH
     Route: 048

REACTIONS (3)
  - Dizziness [None]
  - Depression [None]
  - Poisoning [None]
